FAERS Safety Report 9099392 (Version 5)
Quarter: 2013Q2

REPORT INFORMATION
  Report Type: Spontaneous
  Country: DE (occurrence: DE)
  Receive Date: 20130214
  Receipt Date: 20130628
  Transmission Date: 20140414
  Serious: Yes (Other)
  Sender: FDA-Public Use
  Company Number: DE-ABBOTT-13P-062-1049459-00

PATIENT
  Age: 35 Year
  Sex: Female

DRUGS (2)
  1. TRENANTONE [Suspect]
     Indication: BREAST CANCER
     Route: 058
     Dates: start: 201102, end: 201302
  2. TAMOXIFEN [Concomitant]
     Indication: PRODUCT USED FOR UNKNOWN INDICATION

REACTIONS (3)
  - Osteopenia [Unknown]
  - Fall [Recovered/Resolved]
  - Humerus fracture [Unknown]
